FAERS Safety Report 17345081 (Version 2)
Quarter: 2021Q1

REPORT INFORMATION
  Report Type: Spontaneous
  Country: US (occurrence: US)
  Receive Date: 20200129
  Receipt Date: 20210203
  Transmission Date: 20210419
  Serious: No
  Sender: FDA-Public Use
  Company Number: US-ALLERGAN-1952052US

PATIENT
  Age: 33 Year
  Sex: Female

DRUGS (5)
  1. NORETHINDRONE. [Concomitant]
     Active Substance: NORETHINDRONE
     Dosage: 0.35 MG, QD
  2. BOTOX COSMETIC [Suspect]
     Active Substance: ONABOTULINUMTOXINA
     Indication: MIGRAINE
     Dosage: 155 UNITS, SINGLE
     Route: 065
     Dates: start: 20181102, end: 20181102
  3. MAGNESIUM [Concomitant]
     Active Substance: MAGNESIUM
     Dosage: 500 MG, QD
  4. DIAZEPAM. [Concomitant]
     Active Substance: DIAZEPAM
     Indication: NEEDLE FATIGUE
     Dosage: 5 MG, PRN
  5. NAPROXEN. [Concomitant]
     Active Substance: NAPROXEN
     Dosage: 220 MG UP TO BID PRN

REACTIONS (1)
  - Pregnancy [Unknown]
